FAERS Safety Report 7916998-0 (Version None)
Quarter: 2011Q4

REPORT INFORMATION
  Report Type: 
  Country: None (occurrence: None)
  Receive Date: 20111116
  Receipt Date: 20111116
  Transmission Date: 20120403
  Serious: Yes (Other)
  Sender: FDA-Public Use
  Company Number: None

PATIENT
  Sex: Female
  Weight: 81.646 kg

DRUGS (2)
  1. MICONAZOLE NITRATE [Suspect]
     Indication: FUNGAL INFECTION
     Dosage: SINGLE DOSE PACKAGE
     Route: 067
     Dates: start: 20111115, end: 20111115
  2. MICONAZOLE NITRATE CREAM [Concomitant]

REACTIONS (4)
  - PRODUCT FORMULATION ISSUE [None]
  - GENITAL SWELLING [None]
  - VULVOVAGINAL BURNING SENSATION [None]
  - VULVOVAGINAL PRURITUS [None]
